FAERS Safety Report 7244271-5 (Version None)
Quarter: 2011Q1

REPORT INFORMATION
  Report Type: 
  Country: None (occurrence: None)
  Receive Date: 20110119
  Receipt Date: 20110119
  Transmission Date: 20110831
  Serious: Yes (Disabling, Other)
  Sender: FDA-Public Use
  Company Number: None

PATIENT
  Sex: Female
  Weight: 56.6996 kg

DRUGS (1)
  1. CYCLOBENZAPRINE [Suspect]
     Indication: MUSCLE RELAXANT THERAPY
     Dosage: 5 MG. NIGHTLY ORALLY
     Route: 048
     Dates: start: 20101221, end: 20101223

REACTIONS (7)
  - PAIN [None]
  - BREAST PAIN [None]
  - NIPPLE PAIN [None]
  - DRY MOUTH [None]
  - BREAST ENLARGEMENT [None]
  - FALL [None]
  - NERVOUSNESS [None]
